FAERS Safety Report 8334494-6 (Version None)
Quarter: 2012Q2

REPORT INFORMATION
  Report Type: 
  Country: None (occurrence: None)
  Receive Date: 20120503
  Receipt Date: 20120424
  Transmission Date: 20120825
  Serious: Yes (Hospitalization, Other)
  Sender: FDA-Public Use
  Company Number: US-ASTRAZENECA-2012SE24814

PATIENT
  Age: 20995 Day
  Sex: Male

DRUGS (13)
  1. EVEROLIMUS [Concomitant]
  2. BIFERA [Concomitant]
     Indication: ANAEMIA
     Dosage: 22 MG + 25 MCG + 1 MG
     Route: 048
     Dates: start: 20110822
  3. LISINOPRIL [Concomitant]
     Indication: HYPERTENSION
     Dosage: 20 MG
     Route: 048
  4. LEVOTHYROXINE SODIUM [Concomitant]
     Indication: HYPOTHYROIDISM
     Dosage: 88 MCG
     Route: 048
  5. ASPIRIN [Concomitant]
     Route: 048
     Dates: end: 20110822
  6. METOPROLOL TARTRATE [Concomitant]
     Indication: CORONARY ARTERY DISEASE
     Route: 048
  7. TRICOR [Concomitant]
     Indication: DYSLIPIDAEMIA
     Dosage: 40 MG
     Route: 048
     Dates: start: 20110201
  8. SIMVASTATIN [Concomitant]
     Indication: DYSLIPIDAEMIA
     Dosage: 40 MG
     Route: 048
  9. ASPIRIN [Concomitant]
     Route: 048
     Dates: start: 20110823
  10. ISOSORBIDEMONONITRATE ER [Concomitant]
     Indication: CORONARY ARTERY DISEASE
     Dosage: 30 MG
     Route: 048
  11. BIFERA [Concomitant]
     Indication: IRON DEFICIENCY
     Dosage: 22 MG + 25 MCG + 1 MG
     Route: 048
     Dates: start: 20110822
  12. NIASPAN [Concomitant]
     Indication: DYSLIPIDAEMIA
     Dosage: 1000 MG
     Route: 048
     Dates: start: 20110201
  13. AZD6140 [Suspect]
     Indication: CORONARY ARTERY DISEASE
     Route: 048
     Dates: start: 20110830, end: 20120308

REACTIONS (1)
  - ANAEMIA [None]
